FAERS Safety Report 6242393-9 (Version None)
Quarter: 2009Q2

REPORT INFORMATION
  Report Type: 
  Country: None (occurrence: None)
  Receive Date: 20090622
  Receipt Date: 20090622
  Transmission Date: 20091009
  Serious: Yes (Other)
  Sender: FDA-Public Use
  Company Number: None

PATIENT
  Sex: Female
  Weight: 92.9874 kg

DRUGS (2)
  1. CEFEPIME [Suspect]
     Indication: BREAST INFECTION
     Dosage: 1G IV Q12H
     Route: 042
     Dates: start: 20090602, end: 20090615
  2. CEFEPIME [Suspect]
     Indication: PSEUDOMONAS INFECTION
     Dosage: 1G IV Q12H
     Route: 042
     Dates: start: 20090602, end: 20090615

REACTIONS (1)
  - RASH [None]
